FAERS Safety Report 7784292-7 (Version None)
Quarter: 2011Q3

REPORT INFORMATION
  Report Type: 
  Country: None (occurrence: None)
  Receive Date: 20110928
  Receipt Date: 20110919
  Transmission Date: 20111222
  Serious: Yes (Other)
  Sender: FDA-Public Use
  Company Number: US-ELI_LILLY_AND_COMPANY-US201109006325

PATIENT
  Age: 48 Year
  Sex: Female

DRUGS (2)
  1. EFFIENT [Suspect]
     Indication: CORONARY ARTERY RESTENOSIS
     Dosage: 60 MG, ONCE LOADING DOSE
  2. EFFIENT [Suspect]
     Dosage: 10 MG, QD

REACTIONS (1)
  - CORONARY ARTERY RESTENOSIS [None]
